FAERS Safety Report 19706842 (Version 1)
Quarter: 2021Q3

REPORT INFORMATION
  Report Type: Spontaneous
  Country: CN (occurrence: CN)
  Receive Date: 20210817
  Receipt Date: 20210817
  Transmission Date: 20211014
  Serious: Yes (Other)
  Sender: FDA-Public Use
  Company Number: CN-DRREDDYS-OTH/CHN/21/0138854

PATIENT
  Age: 37 Year
  Sex: Female
  Weight: 69 kg

DRUGS (4)
  1. OLANZAPINE. [Suspect]
     Active Substance: OLANZAPINE
     Dosage: 5 MG AT NIGHT PO.
     Route: 048
  2. QUETIAPINE FUMARATE TABLET [Suspect]
     Active Substance: QUETIAPINE FUMARATE
     Indication: BIPOLAR DISORDER
     Dosage: QUETIAPINE TABLETS 0.2G AT NOON AND 0.5G AT NIGHT PO
     Route: 048
     Dates: start: 20210530, end: 20210701
  3. QUETIAPINE FUMARATE TABLET [Suspect]
     Active Substance: QUETIAPINE FUMARATE
     Dosage: REDUCED TO 0.2G AT NOON AND 0.4G AT NIGHT PO
     Route: 048
  4. OLANZAPINE. [Suspect]
     Active Substance: OLANZAPINE
     Indication: BIPOLAR DISORDER
     Dosage: 5 MG AT NOON AND 5 MG AT NIGHT PO
     Route: 048
     Dates: start: 20210530, end: 20210701

REACTIONS (1)
  - Somatic symptom disorder [Recovering/Resolving]

NARRATIVE: CASE EVENT DATE: 20210701
